FAERS Safety Report 8365477-8 (Version None)
Quarter: 2012Q2

REPORT INFORMATION
  Report Type: 
  Country: None (occurrence: None)
  Receive Date: 20120516
  Receipt Date: 20120510
  Transmission Date: 20120825
  Serious: Yes (Other)
  Sender: FDA-Public Use
  Company Number: PHHY2012US040661

PATIENT
  Age: 11 Year

DRUGS (3)
  1. MYCOPHENOLATE MOFETIL [Concomitant]
  2. CORTICOSTEROIDS [Concomitant]
  3. TACROLIMUS [Suspect]

REACTIONS (2)
  - OSMOTIC DEMYELINATION SYNDROME [None]
  - DEMYELINATION [None]
